FAERS Safety Report 23069839 (Version 4)
Quarter: 2023Q4

REPORT INFORMATION
  Report Type: Report from Study
  Country: US (occurrence: US)
  Receive Date: 20231016
  Receipt Date: 20231218
  Transmission Date: 20240110
  Serious: Yes (Other)
  Sender: FDA-Public Use
  Company Number: US-002147023-NVSC2023US220195

PATIENT
  Sex: Female

DRUGS (4)
  1. KESIMPTA [Suspect]
     Active Substance: OFATUMUMAB
     Indication: Product used for unknown indication
     Dosage: 20 MG/0.4 ML, QW
     Route: 065
     Dates: start: 20231010
  2. DALFAMPRIDINE [Concomitant]
     Active Substance: DALFAMPRIDINE
     Indication: Product used for unknown indication
     Dosage: 10 MG, BID (ER)
     Route: 065
  3. VITAMIN B12 [Concomitant]
     Active Substance: CYANOCOBALAMIN
     Indication: Product used for unknown indication
     Dosage: UNK
     Route: 065
  4. ESTRADIOL [Concomitant]
     Active Substance: ESTRADIOL
     Indication: Product used for unknown indication
     Dosage: 5 MG
     Route: 065

REACTIONS (9)
  - Multiple sclerosis [Unknown]
  - Chills [Unknown]
  - Pain in extremity [Unknown]
  - Paralysis [Unknown]
  - Gait disturbance [Unknown]
  - Movement disorder [Unknown]
  - Urinary incontinence [Unknown]
  - Needle issue [Unknown]
  - Intercepted product storage error [Unknown]
